FAERS Safety Report 11703999 (Version 1)
Quarter: 2015Q4

REPORT INFORMATION
  Report Type: Spontaneous
  Country: US (occurrence: None)
  Receive Date: 20151105
  Receipt Date: 20151105
  Transmission Date: 20160304
  Serious: Yes (Disabling)
  Sender: FDA-Public Use
  Company Number: None

PATIENT
  Age: 35 Year
  Sex: Female
  Weight: 68.04 kg

DRUGS (2)
  1. ENALAPRIL [Concomitant]
     Active Substance: ENALAPRIL
  2. CIPRO [Suspect]
     Active Substance: CIPROFLOXACIN HYDROCHLORIDE
     Indication: URINARY TRACT INFECTION
     Dosage: 1
     Route: 048
     Dates: start: 20140801, end: 20140804

REACTIONS (6)
  - Rash [None]
  - Arthralgia [None]
  - Abdominal pain upper [None]
  - Alopecia [None]
  - Anxiety [None]
  - Tendonitis [None]

NARRATIVE: CASE EVENT DATE: 20140801
